FAERS Safety Report 5270418-6 (Version None)
Quarter: 2007Q1

REPORT INFORMATION
  Report Type: 
  Country: None (occurrence: None)
  Receive Date: 20070320
  Receipt Date: 20070308
  Transmission Date: 20070707
  Serious: Yes (Hospitalization, Disabling, Other)
  Sender: FDA-Public Use
  Company Number: NO-PFIZER INC-2007018755

PATIENT
  Age: 56 Year
  Sex: Male

DRUGS (5)
  1. LYRICA [Suspect]
     Indication: NEURALGIA
     Route: 048
     Dates: start: 20070227, end: 20070303
  2. OXYCONTIN [Concomitant]
     Route: 048
  3. PREDNISOLONE [Concomitant]
     Route: 048
  4. SAROTEX [Concomitant]
     Route: 048
  5. VOLTAREN [Concomitant]
     Route: 048

REACTIONS (15)
  - AGGRESSION [None]
  - AMNESIA [None]
  - BLOOD CREATININE INCREASED [None]
  - DISORIENTATION [None]
  - DISSOCIATION [None]
  - DIZZINESS [None]
  - DYSPNOEA [None]
  - GAIT DISTURBANCE [None]
  - MUSCLE TWITCHING [None]
  - OEDEMA [None]
  - RESTLESSNESS [None]
  - SOMNOLENCE [None]
  - SPEECH DISORDER [None]
  - SUSPICIOUSNESS [None]
  - TREMOR [None]
